FAERS Safety Report 11892389 (Version 1)
Quarter: 2016Q1

REPORT INFORMATION
  Report Type: Spontaneous
  Country: IT (occurrence: IT)
  Receive Date: 20160106
  Receipt Date: 20160106
  Transmission Date: 20160526
  Serious: Yes (Other)
  Sender: FDA-Public Use
  Company Number: PHHY2015IT170444

PATIENT
  Sex: Female

DRUGS (1)
  1. PIOGLITAZONE. [Suspect]
     Active Substance: PIOGLITAZONE
     Indication: TYPE 2 DIABETES MELLITUS
     Dosage: 15 MG, QD
     Route: 048
     Dates: start: 20141115, end: 20150130

REACTIONS (2)
  - Vertigo [Unknown]
  - Hypoglycaemia [Unknown]
